FAERS Safety Report 24824212 (Version 1)
Quarter: 2025Q1

REPORT INFORMATION
  Report Type: Spontaneous
  Country: BY (occurrence: BY)
  Receive Date: 20250109
  Receipt Date: 20250109
  Transmission Date: 20250408
  Serious: Yes (Life-Threatening, Other)
  Sender: JOHNSON AND JOHNSON
  Company Number: BY-JNJFOC-20241282276

PATIENT
  Sex: Male
  Weight: 91 kg

DRUGS (18)
  1. SIRTURO [Suspect]
     Active Substance: BEDAQUILINE FUMARATE
     Indication: Tuberculosis
     Dosage: FOR 2 WEEKS
     Route: 048
     Dates: start: 20240430
  2. SIRTURO [Suspect]
     Active Substance: BEDAQUILINE FUMARATE
     Route: 048
     Dates: end: 20240517
  3. PYRAZINAMIDE [Suspect]
     Active Substance: PYRAZINAMIDE
     Indication: Tuberculosis
     Dosage: RESUMED ON 20-MAY-2024
     Route: 048
     Dates: start: 20240430, end: 20240517
  4. LINEZOLID [Suspect]
     Active Substance: LINEZOLID
     Dosage: RESUMED ON 23-MAY-2024
     Route: 048
     Dates: end: 20240517
  5. LINEZOLID [Suspect]
     Active Substance: LINEZOLID
     Dosage: FOR 112 DOSES
     Route: 048
     Dates: start: 20240430
  6. MOXIFLOXACIN [Suspect]
     Active Substance: MOXIFLOXACIN
     Indication: Tuberculosis
     Dosage: RESUMED ON 27-MAY-2024
     Route: 048
     Dates: start: 20240430, end: 20240517
  7. GLICLAZIDE [Concomitant]
     Active Substance: GLICLAZIDE
     Route: 048
     Dates: start: 20240430
  8. METFORMIN [Concomitant]
     Active Substance: METFORMIN HYDROCHLORIDE
     Indication: Type 2 diabetes mellitus
     Route: 048
     Dates: start: 20240430
  9. BISOPROLOL [Concomitant]
     Active Substance: BISOPROLOL
     Indication: Myocardial ischaemia
     Route: 048
     Dates: start: 20240430
  10. LISINOPRIL [Concomitant]
     Active Substance: LISINOPRIL
  11. INDAPAMIDE [Concomitant]
     Active Substance: INDAPAMIDE
  12. ATORVASTATIN [Concomitant]
     Active Substance: ATORVASTATIN
  13. ASPICARD [Concomitant]
     Indication: Prophylaxis
     Dates: start: 20240430
  14. PYRIDOXINE [Concomitant]
     Active Substance: PYRIDOXINE
     Indication: Prophylaxis
     Dates: start: 20240430
  15. OMEPRAZOLE [Concomitant]
     Active Substance: OMEPRAZOLE
  16. LEVOTHYROXINE SODIUM [Concomitant]
     Active Substance: LEVOTHYROXINE SODIUM
  17. SPIRIVA RESPIMAT [Concomitant]
     Active Substance: TIOTROPIUM BROMIDE
  18. PREDNISONE [Concomitant]
     Active Substance: PREDNISONE

REACTIONS (2)
  - Hypersensitivity [Recovered/Resolved]
  - Clostridium difficile infection [Recovered/Resolved]

NARRATIVE: CASE EVENT DATE: 20240511
